FAERS Safety Report 12389094 (Version 1)
Quarter: 2016Q2

REPORT INFORMATION
  Report Type: Spontaneous
  Country: US (occurrence: US)
  Receive Date: 20160520
  Receipt Date: 20160520
  Transmission Date: 20160815
  Serious: No
  Sender: FDA-Public Use
  Company Number: US-DRREDDYS-USA/USA/15/0048073

PATIENT
  Age: 60 Year
  Sex: Female
  Weight: 46.26 kg

DRUGS (1)
  1. RANITIDINE TABLETS 75 MG [Suspect]
     Active Substance: RANITIDINE
     Indication: GASTROOESOPHAGEAL REFLUX DISEASE
     Route: 048
     Dates: end: 20150514

REACTIONS (2)
  - Fatigue [Recovering/Resolving]
  - Wrong technique in product usage process [Unknown]
